FAERS Safety Report 9036085 (Version 1)
Quarter: 2013Q1

REPORT INFORMATION
  Report Type: Report from Study
  Country: US (occurrence: US)
  Receive Date: 20130129
  Receipt Date: 20130129
  Transmission Date: 20140127
  Serious: No
  Sender: FDA-Public Use
  Company Number: US-ABBOTT-12P-163-0913303-00

PATIENT
  Age: 64 Year
  Sex: Female
  Weight: 74 kg

DRUGS (17)
  1. HUMIRA 40 MG/0.8 ML PEN [Suspect]
     Indication: CROHN^S DISEASE
     Route: 058
     Dates: start: 20081204
  2. TRICOR [Concomitant]
     Indication: BLOOD CHOLESTEROL
     Dosage: EVERY DAY
  3. ZETIA [Concomitant]
     Indication: BLOOD CHOLESTEROL
     Dosage: 10 MG DAILY
     Route: 048
  4. TRIAMTERENE/HCTZ [Concomitant]
     Indication: HYPERTENSION
     Dosage: 37.5-25 MG
  5. SYNTHROID [Concomitant]
     Indication: HYPOTHYROIDISM
     Dosage: 100 MCG DAILY
     Route: 048
  6. TOPAMAX [Concomitant]
     Indication: FIBROMYALGIA
     Dosage: 3 TABS IN THE MORNING
  7. OXYCODONE [Concomitant]
     Indication: PAIN
     Dosage: 1-2 TABS AS REQUIRED (HARDLY USES IT)
  8. VITAMIN D [Concomitant]
     Indication: OSTEOPOROSIS
  9. VITAMIN D [Concomitant]
     Dosage: BID (ONE A DAY)
  10. CALCIUM VIT D [Concomitant]
     Indication: OSTEOPOROSIS
  11. RANITIDINE [Concomitant]
     Indication: GASTROOESOPHAGEAL REFLUX DISEASE
     Dosage: OVER THE COUNTER (TWICE DAILY)
  12. ASPIRIN [Concomitant]
     Indication: PRODUCT USED FOR UNKNOWN INDICATION
  13. DHEA [Concomitant]
     Indication: ALOPECIA
  14. VITAMIN E [Concomitant]
     Indication: PRODUCT USED FOR UNKNOWN INDICATION
  15. EXFORGE [Concomitant]
     Indication: BLOOD PRESSURE
     Dosage: 10/160 MG DAILY
     Route: 048
  16. NUVIGIL [Concomitant]
     Indication: SLEEP DISORDER
     Dosage: 1/2 TAB TO 1 TAB IN THE MORNING
  17. STEROID [Concomitant]
     Indication: BACK PAIN

REACTIONS (5)
  - Thyroid neoplasm [Unknown]
  - Injection site pain [Not Recovered/Not Resolved]
  - Injection site pain [Not Recovered/Not Resolved]
  - Back pain [Not Recovered/Not Resolved]
  - Pain in extremity [Not Recovered/Not Resolved]
